FAERS Safety Report 9231139 (Version 1)
Quarter: 2013Q2

REPORT INFORMATION
  Report Type: Spontaneous
  Country: GB (occurrence: GB)
  Receive Date: 20130415
  Receipt Date: 20130415
  Transmission Date: 20140414
  Serious: Yes (Other)
  Sender: FDA-Public Use
  Company Number: PHHY2013GB034330

PATIENT
  Age: 75 Year
  Sex: Male

DRUGS (2)
  1. AMLODIPINE MALEATE [Suspect]
     Dosage: 10 MG, QD (THERAPY FOR 3-4 YEARS)
  2. ASPIRIN [Concomitant]

REACTIONS (3)
  - Cerebrovascular accident [Unknown]
  - Blood pressure abnormal [Unknown]
  - Cardiac disorder [Unknown]
